FAERS Safety Report 20072743 (Version 1)
Quarter: 2021Q4

REPORT INFORMATION
  Report Type: Spontaneous
  Country: GR (occurrence: GR)
  Receive Date: 20211116
  Receipt Date: 20211116
  Transmission Date: 20220303
  Serious: Yes (Hospitalization)
  Sender: FDA-Public Use
  Company Number: GR-CELLTRION INC.-2021GR015267

PATIENT

DRUGS (2)
  1. INFLIXIMAB [Suspect]
     Active Substance: INFLIXIMAB
     Indication: Colitis ulcerative
     Dosage: UNK, PRIMARY DOSE (ROUTE OF ADMINISTRATION: INFUSION)
  2. INFLIXIMAB [Suspect]
     Active Substance: INFLIXIMAB
     Dosage: UNK, MAINTENANCE DOSE (ROUTE OF ADMINISTRATION: INFUSION)

REACTIONS (2)
  - Colitis ulcerative [Recovered/Resolved]
  - Cytomegalovirus colitis [Recovered/Resolved]

NARRATIVE: CASE EVENT DATE: 20210101
